FAERS Safety Report 9029788 (Version 1)
Quarter: 2013Q1

REPORT INFORMATION
  Report Type: Spontaneous
  Country: PL (occurrence: PL)
  Receive Date: 20130124
  Receipt Date: 20130124
  Transmission Date: 20140127
  Serious: Yes (Death, Other)
  Sender: FDA-Public Use
  Company Number: PL-CELGENEUS-129-50794-12111773

PATIENT
  Sex: Female

DRUGS (2)
  1. VIDAZA [Suspect]
     Indication: MYELODYSPLASTIC SYNDROME
     Route: 065
     Dates: end: 201210
  2. VIDAZA [Suspect]
     Route: 065
     Dates: start: 201209, end: 201209

REACTIONS (3)
  - Death [Fatal]
  - Pneumonia [Unknown]
  - Cellulitis [Unknown]
